FAERS Safety Report 5148045-0 (Version None)
Quarter: 2006Q4

REPORT INFORMATION
  Report Type: 
  Country: None (occurrence: None)
  Receive Date: 20061110
  Receipt Date: 20061106
  Transmission Date: 20070319
  Serious: Yes (Hospitalization)
  Sender: FDA-Public Use
  Company Number: BHB-01-055A

PATIENT
  Age: 37 Year
  Sex: Male

DRUGS (3)
  1. QUILONUM RETARD [Suspect]
     Dosage: 900MG PER DAY
     Route: 048
     Dates: start: 20060222, end: 20060307
  2. MELPERON [Suspect]
     Dosage: 75MG PER DAY
     Route: 048
     Dates: start: 20060223
  3. VALPROATE SODIUM [Concomitant]
     Dosage: 150MG PER DAY
     Route: 065
     Dates: start: 20060308

REACTIONS (3)
  - DISTURBANCE IN ATTENTION [None]
  - DRUG INTERACTION [None]
  - MEMORY IMPAIRMENT [None]
